FAERS Safety Report 6125113-8 (Version None)
Quarter: 2009Q1

REPORT INFORMATION
  Report Type: 
  Country: None (occurrence: None)
  Receive Date: 20090318
  Receipt Date: 20090309
  Transmission Date: 20090719
  Serious: No
  Sender: FDA-Public Use
  Company Number: 09US000136

PATIENT
  Age: 26 Month
  Sex: Female
  Weight: 13.6 kg

DRUGS (2)
  1. IBUPROFEN [Suspect]
     Indication: ACCIDENTAL OVERDOSE
     Dosage: SINGLE DOSE, ORAL
     Route: 048
     Dates: start: 20090307, end: 20090307
  2. RESPIRATORY SYNCYTICAL VIRUS IMMUNOGLOBULINS (RESPIRATORY SYNCYTICAL V [Concomitant]

REACTIONS (3)
  - ACCIDENTAL EXPOSURE [None]
  - ACCIDENTAL OVERDOSE [None]
  - PYREXIA [None]
